FAERS Safety Report 10714056 (Version 1)
Quarter: 2015Q1

REPORT INFORMATION
  Report Type: Report from Study
  Country: US (occurrence: US)
  Receive Date: 20150115
  Receipt Date: 20150115
  Transmission Date: 20150721
  Serious: Yes (Hospitalization)
  Sender: FDA-Public Use
  Company Number: US-PURDUE-USA-2015-0120051

PATIENT
  Sex: Female

DRUGS (2)
  1. BTDS PATCH [Suspect]
     Active Substance: BUPRENORPHINE
     Indication: ARTHRALGIA
     Dosage: 15 MCG/HR, WEEKLY
     Route: 062
     Dates: start: 20141118
  2. BTDS PATCH [Suspect]
     Active Substance: BUPRENORPHINE
     Dosage: UNK
     Route: 062
     Dates: start: 201402

REACTIONS (1)
  - Influenza [Unknown]
